FAERS Safety Report 6673840-6 (Version None)
Quarter: 2010Q2

REPORT INFORMATION
  Report Type: 
  Country: None (occurrence: None)
  Receive Date: 20100407
  Receipt Date: 20100402
  Transmission Date: 20101027
  Serious: Yes (Death, Other)
  Sender: FDA-Public Use
  Company Number: 2010SP019616

PATIENT
  Age: 52 Year
  Sex: Female

DRUGS (1)
  1. TEMODAR [Suspect]
     Indication: ENDOMETRIAL CANCER

REACTIONS (1)
  - FLUID RETENTION [None]
